FAERS Safety Report 7618775-7 (Version None)
Quarter: 2011Q3

REPORT INFORMATION
  Report Type: 
  Country: None (occurrence: None)
  Receive Date: 20110718
  Receipt Date: 20110705
  Transmission Date: 20111222
  Serious: Yes (Hospitalization)
  Sender: FDA-Public Use
  Company Number: US-JNJFOC-20110703906

PATIENT
  Sex: Female
  Weight: 23.4 kg

DRUGS (15)
  1. REMICADE [Suspect]
     Indication: INFLAMMATORY BOWEL DISEASE
     Route: 042
     Dates: start: 20110309
  2. CLONIDINE [Concomitant]
  3. CLARITIN [Concomitant]
  4. CONCERTA [Concomitant]
  5. BUDESONIDE [Concomitant]
  6. PULMICORT [Concomitant]
  7. REMICADE [Suspect]
     Route: 042
     Dates: start: 20110427
  8. CROMOLYN SODIUM [Concomitant]
     Route: 047
  9. FLONASE [Concomitant]
     Route: 045
  10. ABILIFY [Concomitant]
  11. ALBUTEROL SULFATE AUTOHALER [Concomitant]
  12. MIRALAX [Concomitant]
  13. MESALAMINE [Concomitant]
     Route: 048
  14. CHOLESTYRAMINE [Concomitant]
  15. OMEPRAZOLE [Concomitant]

REACTIONS (1)
  - ROAD TRAFFIC ACCIDENT [None]
